FAERS Safety Report 5536985-X (Version None)
Quarter: 2007Q4

REPORT INFORMATION
  Report Type: 
  Country: None (occurrence: None)
  Receive Date: 20071120
  Receipt Date: 20070919
  Transmission Date: 20080405
  Serious: No
  Sender: FDA-Public Use
  Company Number: WAES 0709USA03188

PATIENT
  Age: 74 Year
  Sex: Female

DRUGS (12)
  1. JANUVIA [Suspect]
     Indication: DIABETES MELLITUS
     Dosage: PO
     Route: 047
     Dates: start: 20070905
  2. ARICEPT [Concomitant]
  3. COZAAR [Concomitant]
  4. DIGITEX [Concomitant]
  5. KLOR-CON [Concomitant]
  6. TAZTIA XT [Concomitant]
  7. TRACLEER [Concomitant]
  8. THERAPY UNSPECIFIED [Concomitant]
  9. AMPICILLIN [Concomitant]
  10. FUROSEMIDE [Concomitant]
  11. METFORMIN HCL [Concomitant]
  12. WARFARIN SODIUM [Concomitant]

REACTIONS (2)
  - PRURITUS GENERALISED [None]
  - WRONG TECHNIQUE IN DRUG USAGE PROCESS [None]
